FAERS Safety Report 6752789-4 (Version None)
Quarter: 2010Q2

REPORT INFORMATION
  Report Type: 
  Country: None (occurrence: None)
  Receive Date: 20100602
  Receipt Date: 20100602
  Transmission Date: 20101027
  Serious: Yes (Other)
  Sender: FDA-Public Use
  Company Number: None

PATIENT
  Age: 60 Year
  Sex: Female
  Weight: 74.8435 kg

DRUGS (5)
  1. AVELOX [Suspect]
     Indication: SINUSITIS
     Dosage: 1 TABLET EVERYDAY PO
     Route: 048
     Dates: start: 20100520, end: 20100528
  2. PREMARIN [Concomitant]
  3. LOVASTATIN [Concomitant]
  4. CENTURM MULTIVITAMIN [Concomitant]
  5. VIT D3 [Concomitant]

REACTIONS (3)
  - PAIN [None]
  - RASH ERYTHEMATOUS [None]
  - RASH PRURITIC [None]
